FAERS Safety Report 4369758-4 (Version None)
Quarter: 2004Q2

REPORT INFORMATION
  Report Type: 
  Country: None (occurrence: None)
  Receive Date: 20040525
  Receipt Date: 20040514
  Transmission Date: 20050107
  Serious: Yes (Life-Threatening, Hospitalization)
  Sender: FDA-Public Use
  Company Number: 04P-062-0261079-00

PATIENT
  Sex: Male

DRUGS (8)
  1. BIAXIN [Suspect]
     Indication: ENTERITIS
     Dosage: 500 MG, 2 IN 1 D, ORAL
     Route: 048
     Dates: end: 20040506
  2. BIAXIN [Suspect]
     Indication: HELICOBACTER INFECTION
     Dosage: 500 MG, 2 IN 1 D, ORAL
     Route: 048
     Dates: end: 20040506
  3. PANTOPRAZOLE [Suspect]
     Indication: ENTERITIS
     Dosage: 40 MG, 2 IN 1 D, ORAL
     Route: 048
     Dates: end: 20040506
  4. PANTOPRAZOLE [Suspect]
     Indication: HELICOBACTER INFECTION
     Dosage: 40 MG, 2 IN 1 D, ORAL
     Route: 048
     Dates: end: 20040506
  5. AMOXICILLIN [Suspect]
     Indication: ENTERITIS
     Dosage: 1000 MG, 2 IN 1 D, ORAL
     Route: 048
     Dates: end: 20040506
  6. AMOXICILLIN [Suspect]
     Indication: HELICOBACTER INFECTION
     Dosage: 1000 MG, 2 IN 1 D, ORAL
     Route: 048
     Dates: end: 20040506
  7. ZACPAC [Suspect]
     Indication: ENTERITIS
     Dosage: 3 IN 1 D
     Dates: end: 20040506
  8. ZACPAC [Suspect]
     Indication: HELICOBACTER INFECTION
     Dosage: 3 IN 1 D
     Dates: end: 20040506

REACTIONS (3)
  - DEPRESSION SUICIDAL [None]
  - GENERAL PHYSICAL CONDITION ABNORMAL [None]
  - TREMOR [None]
